FAERS Safety Report 4848263-2 (Version None)
Quarter: 2005Q4

REPORT INFORMATION
  Report Type: 
  Country: None (occurrence: None)
  Receive Date: 20051207
  Receipt Date: 20051207
  Transmission Date: 20060501
  Serious: Yes (Death)
  Sender: FDA-Public Use
  Company Number: None

PATIENT
  Age: 63 Year
  Sex: Female
  Weight: 59 kg

DRUGS (2)
  1. BEVACIZUMAB 15 M/M2 [Suspect]
     Indication: NON-SMALL CELL LUNG CANCER
     Dosage: 866 MG
     Dates: start: 20051019
  2. ERLOTINIB 150 MG/DAY [Suspect]
     Indication: NON-SMALL CELL LUNG CANCER
     Dosage: 150 MG /DAY
     Dates: start: 20051108

REACTIONS (1)
  - DEATH [None]
